FAERS Safety Report 17329306 (Version 3)
Quarter: 2020Q3

REPORT INFORMATION
  Report Type: Report from Study
  Country: US (occurrence: US)
  Receive Date: 20200127
  Receipt Date: 20200721
  Transmission Date: 20201102
  Serious: No
  Sender: FDA-Public Use
  Company Number: US-SA-2020SA018128

PATIENT

DRUGS (3)
  1. DUPILUMAB [Suspect]
     Active Substance: DUPILUMAB
     Indication: DERMATITIS ATOPIC
     Dosage: 600 MG, 1X
     Route: 058
  2. FLUOCINONIDE. [Concomitant]
     Active Substance: FLUOCINONIDE
  3. DUPILUMAB [Suspect]
     Active Substance: DUPILUMAB
     Dosage: 300 MG, QOW
     Route: 058
     Dates: start: 20191210, end: 202002

REACTIONS (6)
  - Dermatitis atopic [Unknown]
  - Skin irritation [Unknown]
  - Drug ineffective [Unknown]
  - Rash [Unknown]
  - Product administration interrupted [Unknown]
  - Extra dose administered [Unknown]

NARRATIVE: CASE EVENT DATE: 202002
